FAERS Safety Report 11058920 (Version 1)
Quarter: 2015Q2

REPORT INFORMATION
  Report Type: Spontaneous
  Country: US (occurrence: None)
  Receive Date: 20150422
  Receipt Date: 20150422
  Transmission Date: 20150821
  Serious: Yes (Life-Threatening, Other)
  Sender: FDA-Public Use
  Company Number: None

PATIENT
  Age: 18 Year
  Sex: Female
  Weight: 56.7 kg

DRUGS (2)
  1. INVEGA [Suspect]
     Active Substance: PALIPERIDONE
     Indication: HALLUCINATION, AUDITORY
     Route: 048
  2. INVEGA [Suspect]
     Active Substance: PALIPERIDONE
     Indication: BIPOLAR DISORDER
     Route: 048

REACTIONS (9)
  - Muscle rigidity [None]
  - Trismus [None]
  - Hypersensitivity [None]
  - Feeling abnormal [None]
  - Movement disorder [None]
  - Swollen tongue [None]
  - Vision blurred [None]
  - Somnolence [None]
  - Musculoskeletal stiffness [None]

NARRATIVE: CASE EVENT DATE: 20150409
